FAERS Safety Report 7298871-7 (Version None)
Quarter: 2011Q1

REPORT INFORMATION
  Report Type: 
  Country: None (occurrence: None)
  Receive Date: 20110217
  Receipt Date: 20110208
  Transmission Date: 20110831
  Serious: Yes (Other)
  Sender: FDA-Public Use
  Company Number: CA-ROCHE-758872

PATIENT
  Sex: Male

DRUGS (2)
  1. BEVACIZUMAB [Suspect]
     Indication: GLIOBLASTOMA
     Route: 042
     Dates: start: 20101020
  2. DILANTIN [Concomitant]

REACTIONS (3)
  - HEMIPARESIS [None]
  - FATIGUE [None]
  - EXPRESSIVE LANGUAGE DISORDER [None]
